FAERS Safety Report 9391183 (Version 3)
Quarter: 2013Q3

REPORT INFORMATION
  Report Type: Spontaneous
  Country: US (occurrence: US)
  Receive Date: 20130709
  Receipt Date: 20130806
  Transmission Date: 20140515
  Serious: Yes (Other)
  Sender: FDA-Public Use
  Company Number: PHEH2013US014130

PATIENT
  Age: 55 Year
  Sex: Female
  Weight: 61.68 kg

DRUGS (3)
  1. RECLAST [Suspect]
     Indication: OSTEOPOROSIS
     Dosage: 5 MG
     Route: 042
     Dates: start: 20130628
  2. VITAMIN D [Concomitant]
     Dosage: 2000 U, UNK
  3. CALCIUM [Concomitant]

REACTIONS (10)
  - Angina pectoris [Unknown]
  - Chest pain [Unknown]
  - Underdose [Unknown]
  - Incorrect drug administration duration [Unknown]
  - Fear [Unknown]
  - Pain [Recovered/Resolved]
  - Hypoaesthesia oral [Recovered/Resolved]
  - Paraesthesia oral [Unknown]
  - Hypoaesthesia [Unknown]
  - Myalgia [Unknown]
